FAERS Safety Report 23585693 (Version 1)
Quarter: 2024Q1

REPORT INFORMATION
  Report Type: Spontaneous
  Country: US (occurrence: None)
  Receive Date: 20240229
  Receipt Date: 20240229
  Transmission Date: 20240409
  Serious: Yes (Other)
  Sender: FDA-Public Use
  Company Number: None

PATIENT
  Age: 54 Year
  Sex: Male
  Weight: 69.75 kg

DRUGS (1)
  1. SPRAVATO [Suspect]
     Active Substance: ESKETAMINE
     Indication: Depression
     Dosage: OTHER QUANTITY : 3 PUFF(S);?OTHER FREQUENCY : 2 WEEKS;?OTHER ROUTE : NASAL SPRAY;?
     Route: 050
     Dates: start: 20230619

REACTIONS (1)
  - Nasal vestibulitis [None]

NARRATIVE: CASE EVENT DATE: 20231215
